FAERS Safety Report 8826938 (Version 1)
Quarter: 2012Q4

REPORT INFORMATION
  Report Type: 
  Country: US (occurrence: US)
  Receive Date: 20121005
  Receipt Date: 20121005
  Transmission Date: 20130627
  Serious: No
  Sender: FDA-Public Use
  Company Number: US-PFIZER INC-2012244227

PATIENT
  Sex: Female

DRUGS (3)
  1. CHANTIX [Suspect]
     Indication: SMOKING CESSATION THERAPY
     Dosage: UNK
     Dates: start: 20120522
  2. CHANTIX [Suspect]
     Dosage: 1 mg, 2x/day
     Dates: end: 201208
  3. CHANTIX [Suspect]
     Dosage: UNK
     Dates: start: 2012

REACTIONS (3)
  - Nausea [Unknown]
  - Weight increased [Unknown]
  - Frustration [Unknown]
